FAERS Safety Report 5834058-X (Version None)
Quarter: 2008Q3

REPORT INFORMATION
  Report Type: 
  Country: None (occurrence: None)
  Receive Date: 20080801
  Receipt Date: 20080801
  Transmission Date: 20090109
  Serious: Yes (Other)
  Sender: FDA-Public Use
  Company Number: None

PATIENT
  Sex: Female
  Weight: 59.1 kg

DRUGS (1)
  1. SARGRAMOSTIM [Suspect]
     Indication: ALVEOLAR PROTEINOSIS
     Dosage: 250 MCG DAILY SQ
     Route: 058
     Dates: start: 20080101, end: 20080529

REACTIONS (13)
  - ABDOMINAL PAIN UPPER [None]
  - CHEST PAIN [None]
  - CHILLS [None]
  - CONDITION AGGRAVATED [None]
  - FEELING HOT [None]
  - HEADACHE [None]
  - HYPERHIDROSIS [None]
  - INAPPROPRIATE SCHEDULE OF DRUG ADMINISTRATION [None]
  - LUNG INFILTRATION [None]
  - NAUSEA [None]
  - OXYGEN SATURATION DECREASED [None]
  - PYREXIA [None]
  - VOMITING [None]
